FAERS Safety Report 20910584 (Version 1)
Quarter: 2022Q2

REPORT INFORMATION
  Report Type: Spontaneous
  Country: US (occurrence: None)
  Receive Date: 20220602
  Receipt Date: 20220602
  Transmission Date: 20220720
  Serious: Yes (Life-Threatening, Hospitalization, Disabling)
  Sender: FDA-Public Use
  Company Number: None

PATIENT
  Age: 53 Year
  Sex: Female
  Weight: 99.79 kg

DRUGS (11)
  1. ZONISAMIDE [Suspect]
     Active Substance: ZONISAMIDE
     Indication: Seizure
     Dosage: FREQUENCY : DAILY; AT BEDTIME
     Route: 048
     Dates: end: 20220515
  2. ARMOUR THYROID [Concomitant]
  3. ESTROGENS [Concomitant]
  4. LAMOTRIGINE [Concomitant]
     Active Substance: LAMOTRIGINE
  5. (ZOFRAN) ONDANSETRON [Concomitant]
  6. PANTOPRAZOLE [Concomitant]
  7. SUCRALFATE [Concomitant]
  8. VITAMIN D NOS [Concomitant]
     Active Substance: VITAMIN D NOS
  9. VITAMIN C [Concomitant]
     Active Substance: ASCORBIC ACID
  10. VITAMIN B12 [Concomitant]
     Active Substance: CYANOCOBALAMIN
  11. VENLAFAXINE [Concomitant]

REACTIONS (11)
  - Feeling abnormal [None]
  - Nausea [None]
  - Abdominal pain upper [None]
  - Vomiting [None]
  - Myalgia [None]
  - Pain [None]
  - Fatigue [None]
  - Asthenia [None]
  - Abdominal pain upper [None]
  - Diarrhoea [None]
  - Product contamination [None]

NARRATIVE: CASE EVENT DATE: 20220419
